FAERS Safety Report 19653004 (Version 3)
Quarter: 2022Q2

REPORT INFORMATION
  Report Type: Spontaneous
  Country: US (occurrence: US)
  Receive Date: 20210803
  Receipt Date: 20220614
  Transmission Date: 20220721
  Serious: Yes (Other)
  Sender: FDA-Public Use
  Company Number: US-PFIZER INC-2016167310

PATIENT
  Age: 23 Year
  Sex: Male
  Weight: 72.58 kg

DRUGS (4)
  1. BENEFIX [Suspect]
     Active Substance: COAGULATION FACTOR IX RECOMBINANT HUMAN\ISOPROPYL ALCOHOL
     Indication: Haemophilia
     Dosage: 5700 IU, +/- 5% DOSE: 100% # OF DOSE: 3; ON DEMAND FOR BLEEDS
  2. BENEFIX [Suspect]
     Active Substance: COAGULATION FACTOR IX RECOMBINANT HUMAN\ISOPROPYL ALCOHOL
     Dosage: 7300 IU +/- 10% # OF DOSE: 3; 7300 UNITS (+/-10%) = 100 UNITS/KG DAILY ON DEMAND FOR BLEEDS
  3. BENEFIX [Suspect]
     Active Substance: COAGULATION FACTOR IX RECOMBINANT HUMAN\ISOPROPYL ALCOHOL
     Dosage: 7600 IU (+/-10%) = 100 UNITS/KG DAILY ON DEMAND
  4. BENEFIX [Suspect]
     Active Substance: COAGULATION FACTOR IX RECOMBINANT HUMAN\ISOPROPYL ALCOHOL
     Dosage: 3 SHOTS 3 DOSES 1 PER DAY

REACTIONS (2)
  - Haemarthrosis [Unknown]
  - Contusion [Unknown]

NARRATIVE: CASE EVENT DATE: 20220601
